FAERS Safety Report 8452429-2 (Version None)
Quarter: 2012Q2

REPORT INFORMATION
  Report Type: 
  Country: None (occurrence: None)
  Receive Date: 20120620
  Receipt Date: 20120612
  Transmission Date: 20120825
  Serious: No
  Sender: FDA-Public Use
  Company Number: US-PFIZER INC-2012103775

PATIENT
  Sex: Female
  Weight: 56.689 kg

DRUGS (3)
  1. XALATAN [Suspect]
     Indication: GLAUCOMA
     Dosage: UNK
  2. AZOPT [Concomitant]
     Indication: GLAUCOMA
     Dosage: UNK
  3. LUMIGAN [Suspect]
     Indication: GLAUCOMA
     Dosage: UNK

REACTIONS (3)
  - ABDOMINAL DISCOMFORT [None]
  - INCORRECT DOSE ADMINISTERED [None]
  - HEADACHE [None]
